FAERS Safety Report 9028836 (Version 1)
Quarter: 2013Q1

REPORT INFORMATION
  Report Type: Spontaneous
  Country: US (occurrence: US)
  Receive Date: 20130124
  Receipt Date: 20130124
  Transmission Date: 20140127
  Serious: Yes (Other)
  Sender: FDA-Public Use
  Company Number: US-JNJFOC-20130110956

PATIENT
  Age: 62 Year
  Sex: Female

DRUGS (3)
  1. ELMIRON [Suspect]
     Indication: CYSTITIS INTERSTITIAL
     Route: 065
  2. ELMIRON [Suspect]
     Indication: CYSTITIS INTERSTITIAL
     Route: 065
     Dates: start: 2011
  3. NEUPOGEN [Concomitant]
     Indication: LEUKOPENIA
     Route: 065

REACTIONS (9)
  - Bladder disorder [Unknown]
  - Haemorrhage [Unknown]
  - Haematocrit decreased [Unknown]
  - Haematochezia [Unknown]
  - Haemoglobin decreased [Unknown]
  - Chromaturia [Unknown]
  - Nausea [Unknown]
  - Alopecia [Recovering/Resolving]
  - Adverse drug reaction [Unknown]
